FAERS Safety Report 15575471 (Version 2)
Quarter: 2019Q1

REPORT INFORMATION
  Report Type: Report from Study
  Country: IN (occurrence: IN)
  Receive Date: 20181101
  Receipt Date: 20190108
  Transmission Date: 20190417
  Serious: Yes (Other)
  Sender: FDA-Public Use
  Company Number: PHHY2018IN139825

PATIENT
  Age: 61 Year
  Sex: Male
  Weight: 62 kg

DRUGS (1)
  1. VYMADA [Suspect]
     Active Substance: SACUBITRIL\VALSARTAN
     Indication: CARDIAC FAILURE
     Dosage: 100 MG, BID
     Route: 048
     Dates: start: 20180704

REACTIONS (3)
  - Spinal fracture [Recovering/Resolving]
  - Fall [Recovering/Resolving]
  - Diabetes mellitus [Recovering/Resolving]
